FAERS Safety Report 15795180 (Version 1)
Quarter: 2019Q1

REPORT INFORMATION
  Report Type: Spontaneous
  Country: US (occurrence: US)
  Receive Date: 20190107
  Receipt Date: 20190107
  Transmission Date: 20190417
  Serious: Yes (Death, Other)
  Sender: FDA-Public Use
  Company Number: None

PATIENT
  Age: 65 Year
  Sex: Female
  Weight: 68.4 kg

DRUGS (14)
  1. MYLOTARG [Suspect]
     Active Substance: GEMTUZUMAB OZOGAMICIN
     Indication: ACUTE MYELOID LEUKAEMIA
     Dosage: QUANTITY:1 INFUSION;OTHER FREQUENCY:EVERY 3 DAYS;?
     Route: 042
     Dates: start: 20180313, end: 20180319
  2. MAXIPIME [Concomitant]
     Active Substance: CEFEPIME HYDROCHLORIDE
  3. ACETAMINOPHEN. [Concomitant]
     Active Substance: ACETAMINOPHEN
  4. PROTONIX [Concomitant]
     Active Substance: PANTOPRAZOLE SODIUM
  5. BENADRYL [Concomitant]
     Active Substance: DIPHENHYDRAMINE HYDROCHLORIDE
  6. NORCO [Concomitant]
     Active Substance: ACETAMINOPHEN\HYDROCODONE BITARTRATE
  7. RANEXA [Concomitant]
     Active Substance: RANOLAZINE
  8. NEUROTIN [Concomitant]
     Active Substance: GABAPENTIN
  9. ASPIRIN. [Concomitant]
     Active Substance: ASPIRIN
  10. MORPHINE [Concomitant]
     Active Substance: MORPHINE
  11. VITAMIN D [Concomitant]
     Active Substance: CHOLECALCIFEROL
  12. PROLIA [Concomitant]
     Active Substance: DENOSUMAB
  13. VANCOMYCIN [Concomitant]
     Active Substance: VANCOMYCIN
  14. METHYLPREDNISOLONE SODIUM [Concomitant]

REACTIONS (7)
  - Gastrointestinal haemorrhage [None]
  - Thrombocytopenia [None]
  - Pancytopenia [None]
  - Haemorrhage [None]
  - Haematemesis [None]
  - Febrile neutropenia [None]
  - Acute kidney injury [None]

NARRATIVE: CASE EVENT DATE: 20180313
